FAERS Safety Report 9144009 (Version 2)
Quarter: 2013Q4

REPORT INFORMATION
  Report Type: Spontaneous
  Country: US (occurrence: US)
  Receive Date: 20130306
  Receipt Date: 20131218
  Transmission Date: 20140711
  Serious: Yes (Other)
  Sender: FDA-Public Use
  Company Number: US-ROCHE-1097295

PATIENT
  Sex: Male
  Weight: 52.21 kg

DRUGS (2)
  1. ACCUTANE [Suspect]
     Indication: ACNE
     Route: 065
     Dates: start: 20030711
  2. ACCUTANE [Suspect]
     Route: 065
     Dates: start: 200411, end: 200412

REACTIONS (10)
  - Colitis ulcerative [Unknown]
  - Inflammatory bowel disease [Unknown]
  - Proctitis ulcerative [Unknown]
  - Intestinal obstruction [Unknown]
  - Irritable bowel syndrome [Unknown]
  - Visual acuity reduced [Unknown]
  - Tinea pedis [Unknown]
  - Upper respiratory tract infection [Unknown]
  - Musculoskeletal pain [Unknown]
  - Viral infection [Unknown]
